FAERS Safety Report 8510693-5 (Version None)
Quarter: 2012Q3

REPORT INFORMATION
  Report Type: 
  Country: None (occurrence: None)
  Receive Date: 20120709
  Receipt Date: 20120709
  Transmission Date: 20120928
  Serious: No
  Sender: FDA-Public Use
  Company Number: None

PATIENT

DRUGS (3)
  1. DILAUDID [Suspect]
     Dosage: IV
     Route: 042
  2. MORPHINE SULFATE [Suspect]
     Dosage: ORAL
     Route: 048
  3. OXYCODONE HCL [Suspect]

REACTIONS (7)
  - RESPIRATORY FAILURE [None]
  - MENTAL STATUS CHANGES [None]
  - MEDICATION ERROR [None]
  - LOSS OF CONSCIOUSNESS [None]
  - GENERAL PHYSICAL HEALTH DETERIORATION [None]
  - OVERDOSE [None]
  - RESPIRATORY DISTRESS [None]
